FAERS Safety Report 4421031-1 (Version None)
Quarter: 2004Q3

REPORT INFORMATION
  Report Type: 
  Country: None (occurrence: None)
  Receive Date: 20040809
  Receipt Date: 20040728
  Transmission Date: 20050211
  Serious: Yes (Life-Threatening, Hospitalization)
  Sender: FDA-Public Use
  Company Number: IT-GLAXOSMITHKLINE-B0341194A

PATIENT
  Sex: Male

DRUGS (1)
  1. NEODUPLAMOX [Suspect]
     Dosage: 2G PER DAY
     Route: 048
     Dates: start: 20040706, end: 20040710

REACTIONS (3)
  - EYE DISORDER [None]
  - MUCOUS MEMBRANE DISORDER [None]
  - TOXIC EPIDERMAL NECROLYSIS [None]
